FAERS Safety Report 14772810 (Version 2)
Quarter: 2018Q2

REPORT INFORMATION
  Report Type: Spontaneous
  Country: US (occurrence: US)
  Receive Date: 20180418
  Receipt Date: 20180426
  Transmission Date: 20180711
  Serious: No
  Sender: FDA-Public Use
  Company Number: US-PFIZER INC-2018157312

PATIENT
  Age: 56 Year
  Sex: Female

DRUGS (1)
  1. XELJANZ [Suspect]
     Active Substance: TOFACITINIB CITRATE
     Dosage: 5 MG, UNK
     Dates: start: 201803, end: 2018

REACTIONS (3)
  - Drug hypersensitivity [Not Recovered/Not Resolved]
  - Eye discharge [Not Recovered/Not Resolved]
  - Lacrimation increased [Not Recovered/Not Resolved]
